FAERS Safety Report 25235087 (Version 1)
Quarter: 2025Q2

REPORT INFORMATION
  Report Type: Spontaneous
  Country: US (occurrence: None)
  Receive Date: 20250423
  Receipt Date: 20250423
  Transmission Date: 20250717
  Serious: Yes (Other)
  Sender: FDA-CTU
  Company Number: None

PATIENT
  Age: 49 Year
  Sex: Female

DRUGS (1)
  1. ENTYVIO [Suspect]
     Active Substance: VEDOLIZUMAB
     Indication: Crohn^s disease
     Route: 041
     Dates: start: 20240607, end: 20250415

REACTIONS (7)
  - Illness [None]
  - Sensation of foreign body [None]
  - No reaction on previous exposure to drug [None]
  - Nausea [None]
  - Paraesthesia [None]
  - Presyncope [None]
  - Malaise [None]

NARRATIVE: CASE EVENT DATE: 20250415
